FAERS Safety Report 4749235-9 (Version None)
Quarter: 2005Q3

REPORT INFORMATION
  Report Type: 
  Country: None (occurrence: None)
  Receive Date: 20050812
  Receipt Date: 20050427
  Transmission Date: 20060218
  Serious: Yes (Hospitalization)
  Sender: FDA-Public Use
  Company Number: 403418

PATIENT
  Age: 26 Year
  Sex: Male
  Weight: 94.8 kg

DRUGS (4)
  1. PEGASYS [Suspect]
     Indication: HEPATITIS C VIRUS
     Dosage: 180 MCG 1 PER WEEK SUBCUTANEOUS
     Route: 058
     Dates: start: 20050329
  2. COPEGUS [Suspect]
     Indication: HEPATITIS C VIRUS
     Dosage: 1200 MG DAILY ORAL
     Route: 048
     Dates: start: 20050329
  3. PROZAC [Concomitant]
  4. KLONOPIN [Concomitant]

REACTIONS (1)
  - PNEUMONIA [None]
